FAERS Safety Report 5671652-3 (Version None)
Quarter: 2008Q2

REPORT INFORMATION
  Report Type: 
  Country: None (occurrence: None)
  Receive Date: 20080227
  Receipt Date: 20070213
  Transmission Date: 20081010
  Serious: Yes (Other)
  Sender: FDA-Public Use
  Company Number: CHPA2007US02535

PATIENT
  Age: 38 Year
  Sex: Female
  Weight: 64.9 kg

DRUGS (4)
  1. TRANSDERM SCOP [Suspect]
     Indication: NAUSEA
     Dosage: 1.5 MG, Q72H, TRANSDERMAL
     Route: 062
     Dates: start: 20070206
  2. HYDROXYZINE HCL [Concomitant]
  3. NASONEX [Concomitant]
  4. AMOXICILLIN [Concomitant]

REACTIONS (5)
  - DRUG EXPOSURE DURING PREGNANCY [None]
  - HEART RATE INCREASED [None]
  - MYDRIASIS [None]
  - PALPITATIONS [None]
  - VISION BLURRED [None]
